FAERS Safety Report 24685264 (Version 1)
Quarter: 2024Q4

REPORT INFORMATION
  Report Type: Spontaneous
  Country: US (occurrence: None)
  Receive Date: 20241127
  Receipt Date: 20241127
  Transmission Date: 20250115
  Serious: Yes (Hospitalization)
  Sender: Public
  Company Number: None

PATIENT
  Age: 78 Year
  Sex: Male

DRUGS (1)
  1. VANCOMYCIN HYDROCHLORIDE [Suspect]
     Active Substance: VANCOMYCIN HYDROCHLORIDE
     Indication: Cellulitis
     Dosage: FREQUENCY : ONCE;?
     Route: 042
     Dates: start: 20240703, end: 20240703

REACTIONS (3)
  - Skin burning sensation [None]
  - Drug hypersensitivity [None]
  - Vancomycin infusion reaction [None]

NARRATIVE: CASE EVENT DATE: 20240703
